FAERS Safety Report 8779260 (Version 1)
Quarter: 2012Q4

REPORT INFORMATION
  Report Type: 
  Country: NL (occurrence: NL)
  Receive Date: 20120912
  Receipt Date: 20120912
  Transmission Date: 20130627
  Serious: Yes (Other)
  Sender: FDA-Public Use
  Company Number: NL-ROCHE-1122154

PATIENT
  Sex: Male

DRUGS (1)
  1. ROACTEMRA [Suspect]
     Indication: RHEUMATOID ARTHRITIS
     Route: 042

REACTIONS (1)
  - Arthritis bacterial [Unknown]
